FAERS Safety Report 16279867 (Version 1)
Quarter: 2019Q2

REPORT INFORMATION
  Report Type: Other
  Country: IT (occurrence: IT)
  Receive Date: 20190507
  Receipt Date: 20190507
  Transmission Date: 20190711
  Serious: Yes (Hospitalization)
  Sender: FDA-Public Use
  Company Number: IT-ATLAS PHARMACEUTICALS, LLC-2066701

PATIENT
  Age: 77 Year
  Sex: Female

DRUGS (9)
  1. CLOPIDOGREL [Concomitant]
     Active Substance: CLOPIDOGREL BISULFATE
  2. TORASEMIDE [Concomitant]
     Active Substance: TORSEMIDE
  3. METFORMIN [Suspect]
     Active Substance: METFORMIN HYDROCHLORIDE
     Indication: TYPE 2 DIABETES MELLITUS
  4. VALSARTAN. [Concomitant]
     Active Substance: VALSARTAN
  5. SIMVASTATIN. [Concomitant]
     Active Substance: SIMVASTATIN
  6. ESOMEPRAZOLE MAGNESIUM. [Concomitant]
     Active Substance: ESOMEPRAZOLE MAGNESIUM
  7. ASPIRIN. [Concomitant]
     Active Substance: ASPIRIN
  8. AMLODIPINE [Concomitant]
     Active Substance: AMLODIPINE BESYLATE
  9. AMIODARONE HYDROCHLORIDE. [Concomitant]
     Active Substance: AMIODARONE HYDROCHLORIDE

REACTIONS (3)
  - Lactic acidosis [Unknown]
  - Overdose [Unknown]
  - Toxicity to various agents [Unknown]
